FAERS Safety Report 9361738 (Version 1)
Quarter: 2013Q2

REPORT INFORMATION
  Report Type: Spontaneous
  Country: US (occurrence: US)
  Receive Date: 20130621
  Receipt Date: 20130621
  Transmission Date: 20140414
  Serious: No
  Sender: FDA-Public Use
  Company Number: US-ASTRAZENECA-2013SE42527

PATIENT
  Age: 82 Year
  Sex: Female

DRUGS (4)
  1. BRILINTA [Suspect]
     Indication: ACUTE CORONARY SYNDROME
     Route: 048
     Dates: start: 201212, end: 201212
  2. BRILINTA [Suspect]
     Indication: ACUTE CORONARY SYNDROME
     Route: 048
     Dates: start: 201306
  3. ASPIRIN [Suspect]
     Indication: PROPHYLAXIS
     Route: 065
     Dates: start: 201212
  4. ASPIRIN [Suspect]
     Indication: PROPHYLAXIS
     Route: 065
     Dates: start: 201212

REACTIONS (2)
  - Dyspnoea [Recovered/Resolved]
  - Intentional drug misuse [Unknown]
